FAERS Safety Report 7341617-4 (Version None)
Quarter: 2011Q1

REPORT INFORMATION
  Report Type: 
  Country: None (occurrence: None)
  Receive Date: 20110228
  Receipt Date: 20110211
  Transmission Date: 20110831
  Serious: Yes (Hospitalization)
  Sender: FDA-Public Use
  Company Number: 012249

PATIENT
  Age: 13 Year
  Sex: Male
  Weight: 20.8 kg

DRUGS (7)
  1. LEVETIRACETAM [Suspect]
     Indication: PARTIAL SEIZURES
     Dosage: (675 MG) (752 MG)
     Dates: start: 20070101
  2. LEVETIRACETAM [Suspect]
     Indication: PARTIAL SEIZURES
     Dosage: (675 MG) (752 MG)
     Dates: start: 20070101, end: 20070101
  3. VALPROIC ACID [Concomitant]
  4. BACLOFEN [Concomitant]
  5. MOVICOL /01053601/ [Concomitant]
  6. OXCARBAZEPINE [Concomitant]
  7. LIORESAL [Concomitant]

REACTIONS (5)
  - ALOPECIA [None]
  - DECREASED APPETITE [None]
  - WEIGHT DECREASED [None]
  - PNEUMONIA [None]
  - FATIGUE [None]
